FAERS Safety Report 4993457-9 (Version None)
Quarter: 2006Q2

REPORT INFORMATION
  Report Type: 
  Country: None (occurrence: None)
  Receive Date: 20060504
  Receipt Date: 20060504
  Transmission Date: 20061013
  Serious: Yes (Other)
  Sender: FDA-Public Use
  Company Number: None

PATIENT
  Age: 35 Year
  Sex: Female
  Weight: 58.514 kg

DRUGS (6)
  1. KETEK [Suspect]
     Indication: BACTERIAL INFECTION
     Dosage: 800MG   DAILY   PO
     Route: 048
     Dates: start: 20060106, end: 20060117
  2. KETEK [Suspect]
     Indication: BRONCHITIS
     Dosage: 800MG   DAILY   PO
     Route: 048
     Dates: start: 20060106, end: 20060117
  3. KETEK [Suspect]
     Indication: SINUSITIS
     Dosage: 800MG   DAILY   PO
     Route: 048
     Dates: start: 20060106, end: 20060117
  4. PROTONIX [Concomitant]
  5. MINOCIN [Concomitant]
  6. NASONEX [Concomitant]

REACTIONS (12)
  - ALANINE AMINOTRANSFERASE INCREASED [None]
  - AMNESIA [None]
  - ASPARTATE AMINOTRANSFERASE DECREASED [None]
  - CONNECTIVE TISSUE DISORDER [None]
  - DIZZINESS [None]
  - FATIGUE [None]
  - IMPAIRED WORK ABILITY [None]
  - LIVER DISORDER [None]
  - MALAISE [None]
  - SKIN INFLAMMATION [None]
  - VISION BLURRED [None]
  - VISUAL DISTURBANCE [None]
